FAERS Safety Report 8446029-8 (Version None)
Quarter: 2012Q2

REPORT INFORMATION
  Report Type: 
  Country: None (occurrence: None)
  Receive Date: 20120618
  Receipt Date: 20120604
  Transmission Date: 20120825
  Serious: Yes (Hospitalization)
  Sender: FDA-Public Use
  Company Number: RU-ROCHE-1076374

PATIENT
  Sex: Female
  Weight: 76 kg

DRUGS (5)
  1. CORDAFLEX [Concomitant]
     Indication: HYPERTENSION
     Route: 048
  2. BLINDED BI 201335 (HCV PROTEASE INHIBITOR) [Suspect]
     Indication: HEPATITIS C
     Route: 048
     Dates: start: 20111018, end: 20120403
  3. BISOPROLOL FUMARATE [Concomitant]
     Indication: HYPERTENSION
     Route: 048
     Dates: start: 20120505, end: 20120523
  4. COPEGUS [Suspect]
     Indication: HEPATITIS C
     Route: 048
     Dates: start: 20111018, end: 20120528
  5. PEGASYS [Suspect]
     Indication: HEPATITIS C
     Route: 058
     Dates: start: 20111018, end: 20120525

REACTIONS (3)
  - TACHYCARDIA [None]
  - CHEST PAIN [None]
  - ATRIAL FIBRILLATION [None]
